FAERS Safety Report 4393941-5 (Version None)
Quarter: 2004Q3

REPORT INFORMATION
  Report Type: 
  Country: None (occurrence: None)
  Receive Date: 20040702
  Receipt Date: 20040616
  Transmission Date: 20050211
  Serious: Yes (Other)
  Sender: FDA-Public Use
  Company Number: 2004217222AT

PATIENT
  Age: 75 Year
  Sex: Female
  Weight: 75 kg

DRUGS (1)
  1. BEXTRA [Suspect]
     Indication: GOUT
     Dosage: 20 MG, QD, ORAL
     Route: 048
     Dates: start: 20040501, end: 20040501

REACTIONS (3)
  - DERMATITIS EXFOLIATIVE [None]
  - NAUSEA [None]
  - SWELLING FACE [None]
